FAERS Safety Report 21471014 (Version 2)
Quarter: 2023Q2

REPORT INFORMATION
  Report Type: Report from Study
  Country: CA (occurrence: CA)
  Receive Date: 20221018
  Receipt Date: 20230522
  Transmission Date: 20230721
  Serious: No
  Sender: FDA-Public Use
  Company Number: CA-BAUSCH-BL-2022-014615

PATIENT
  Sex: Female

DRUGS (6)
  1. CONTRAVE [Suspect]
     Active Substance: BUPROPION HYDROCHLORIDE\NALTREXONE HYDROCHLORIDE
     Indication: Weight control
     Dosage: 90MG/8MG (1 TAB IN MORNING, FIRST MONTH)
     Route: 048
     Dates: start: 20220426, end: 20220605
  2. CONTRAVE [Suspect]
     Active Substance: BUPROPION HYDROCHLORIDE\NALTREXONE HYDROCHLORIDE
     Dosage: 90MG/8MG (2 TAB IN MORNING, 1 TAB IN EVENING, SECOND MONTH) (1 IN MORNING, 1 AT LUNCH, 1 AT SUPPER)
     Route: 048
     Dates: start: 20220606, end: 20220626
  3. CONTRAVE [Suspect]
     Active Substance: BUPROPION HYDROCHLORIDE\NALTREXONE HYDROCHLORIDE
     Dosage: 90MG/8MG, 1 TAB IN MORNING, 1 TAB IN NOON
     Route: 048
     Dates: start: 20220627, end: 20220927
  4. CONTRAVE [Suspect]
     Active Substance: BUPROPION HYDROCHLORIDE\NALTREXONE HYDROCHLORIDE
     Dosage: 90MG/8MG, 1 TAB IN AM, 1 TAB IN PM (2ND ATTEMPT)
     Route: 048
     Dates: start: 202212, end: 20230131
  5. HYDROCHLOROTHIAZIDE\TELMISARTAN [Concomitant]
     Active Substance: HYDROCHLOROTHIAZIDE\TELMISARTAN
     Indication: Hypertension
     Dosage: 1 IN 24 HR
     Route: 048
  6. ROSUVASTATIN [Concomitant]
     Active Substance: ROSUVASTATIN
     Indication: Blood cholesterol abnormal
     Dosage: 1 IN 24 HR
     Route: 048

REACTIONS (11)
  - Sleep disorder [Recovered/Resolved]
  - Bronchitis [Not Recovered/Not Resolved]
  - Migraine [Recovered/Resolved]
  - Disease recurrence [Recovered/Resolved]
  - Influenza [Not Recovered/Not Resolved]
  - Therapy cessation [Unknown]
  - Therapy interrupted [Unknown]
  - Product prescribing error [Unknown]
  - Inappropriate schedule of product administration [Unknown]
  - Patient dissatisfaction with treatment [Unknown]
  - Intentional product use issue [Unknown]

NARRATIVE: CASE EVENT DATE: 20220101
